FAERS Safety Report 12914835 (Version 1)
Quarter: 2016Q4

REPORT INFORMATION
  Report Type: Spontaneous
  Country: US (occurrence: US)
  Receive Date: 20161106
  Receipt Date: 20161106
  Transmission Date: 20170207
  Serious: No
  Sender: FDA-Public Use
  Company Number: US-RELYPSA-RLY2016002105

PATIENT
  Sex: Male

DRUGS (11)
  1. MELATONIN [Concomitant]
     Active Substance: MELATONIN
  2. MIRALAX [Concomitant]
     Active Substance: POLYETHYLENE GLYCOL 3350
  3. NEURONTIN [Concomitant]
     Active Substance: GABAPENTIN
  4. TEGRETOL [Concomitant]
     Active Substance: CARBAMAZEPINE
  5. CATAPRES-TTS [Concomitant]
     Active Substance: CLONIDINE
  6. VELTASSA [Suspect]
     Active Substance: PATIROMER
     Indication: HYPERKALAEMIA
     Dosage: 8.4 G, QD
     Route: 048
  7. AMLODIPINE BESYLATE. [Concomitant]
     Active Substance: AMLODIPINE BESYLATE
  8. RENVELA [Concomitant]
     Active Substance: SEVELAMER CARBONATE
  9. LITHOBID [Concomitant]
     Active Substance: LITHIUM CARBONATE
  10. OLANZAPINE. [Concomitant]
     Active Substance: OLANZAPINE
  11. SENNA LAXATIVE [Concomitant]
     Active Substance: SENNOSIDES

REACTIONS (1)
  - Malaise [Unknown]
